FAERS Safety Report 8241488-8 (Version None)
Quarter: 2012Q1

REPORT INFORMATION
  Report Type: 
  Country: None (occurrence: None)
  Receive Date: 20120328
  Receipt Date: 20120321
  Transmission Date: 20120608
  Serious: Yes (Other)
  Sender: FDA-Public Use
  Company Number: US-ASTRAZENECA-2012SE19462

PATIENT
  Age: 69 Year
  Sex: Female

DRUGS (1)
  1. TOPROL-XL [Suspect]
     Route: 048

REACTIONS (18)
  - GASTROOESOPHAGEAL REFLUX DISEASE [None]
  - BLOOD CHOLESTEROL INCREASED [None]
  - GLAUCOMA [None]
  - POLYARTHRITIS [None]
  - THYROID NEOPLASM [None]
  - NEUROPATHY PERIPHERAL [None]
  - CARPAL TUNNEL SYNDROME [None]
  - MYOCARDIAL INFARCTION [None]
  - RENAL DISORDER [None]
  - FIBROMYALGIA [None]
  - HYPERTENSION [None]
  - ADVERSE EVENT [None]
  - EXOSTOSIS [None]
  - CORONARY ARTERY OCCLUSION [None]
  - MYELOPATHY [None]
  - DIABETES MELLITUS [None]
  - INTERVERTEBRAL DISC PROTRUSION [None]
  - SPINAL FRACTURE [None]
